FAERS Safety Report 8932757 (Version 2)
Quarter: 2013Q2

REPORT INFORMATION
  Report Type: Spontaneous
  Country: US (occurrence: US)
  Receive Date: 20121129
  Receipt Date: 20130503
  Transmission Date: 20140414
  Serious: Yes (Hospitalization, Disabling)
  Sender: FDA-Public Use
  Company Number: US-BAYER-2012-124496

PATIENT
  Age: 41 Year
  Sex: Female

DRUGS (10)
  1. YAZ [Suspect]
     Dosage: UNK
     Dates: start: 200909, end: 20100528
  2. OCELLA [Suspect]
     Dosage: UNK
     Dates: start: 200909, end: 20100528
  3. YASMIN [Suspect]
  4. GIANVI [Suspect]
  5. KETOROLAC [Concomitant]
  6. LORATADIN [Concomitant]
  7. THERAGRAN [Concomitant]
  8. PROMETHAZINE [Concomitant]
  9. NORCO [Concomitant]
  10. ZOFRAN [Concomitant]

REACTIONS (6)
  - Cerebral venous thrombosis [None]
  - Injury [None]
  - Pain [None]
  - Deformity [None]
  - Anxiety [None]
  - Anhedonia [None]
